FAERS Safety Report 20207839 (Version 1)
Quarter: 2021Q4

REPORT INFORMATION
  Report Type: Spontaneous
  Country: US (occurrence: US)
  Receive Date: 20211220
  Receipt Date: 20211220
  Transmission Date: 20220304
  Serious: Yes (Other)
  Sender: FDA-Public Use
  Company Number: US-ZO SKIN HEALTH-2021ZOS00029

PATIENT
  Age: 62 Year
  Sex: Female

DRUGS (7)
  1. TRETINOIN [Suspect]
     Active Substance: TRETINOIN
     Indication: Acute promyelocytic leukaemia
     Dosage: 45 MG/M2, PER DAY, 5 DAYS PER WEEK
     Route: 065
  2. TRETINOIN [Suspect]
     Active Substance: TRETINOIN
     Dosage: 25 MG/M2
     Route: 065
  3. ARSENIC TRIOXIDE [Suspect]
     Active Substance: ARSENIC TRIOXIDE
     Indication: Acute promyelocytic leukaemia
     Dosage: 0.15 MG/KG, 5 DAYS PER WEEK
     Route: 065
  4. ARSENIC TRIOXIDE [Suspect]
     Active Substance: ARSENIC TRIOXIDE
     Dosage: 0.10 MG/KG
     Route: 065
  5. PREDNISONE [Concomitant]
     Active Substance: PREDNISONE
     Indication: Prophylaxis
     Dosage: 0.5 MG/KG, DAILY
     Route: 065
  6. PREDNISONE [Concomitant]
     Active Substance: PREDNISONE
     Dosage: 60 MG
     Route: 065
  7. PREDNISONE [Concomitant]
     Active Substance: PREDNISONE
     Dosage: TAPERED OFF 10 MG EVERY WEEK
     Route: 065

REACTIONS (2)
  - Myocarditis [Recovered/Resolved]
  - Differentiation syndrome [Recovered/Resolved]
